FAERS Safety Report 9712158 (Version 1)
Quarter: 2013Q4

REPORT INFORMATION
  Report Type: Spontaneous
  Country: US (occurrence: None)
  Receive Date: 20131125
  Receipt Date: 20131125
  Transmission Date: 20140711
  Serious: Yes (Disabling)
  Sender: FDA-Public Use
  Company Number: None

PATIENT
  Age: 54 Year
  Sex: 0

DRUGS (2)
  1. MONTELUKAST [Suspect]
     Indication: ASTHMA
     Route: 048
  2. MONTELUKAST [Suspect]
     Indication: BRONCHIAL HYPERREACTIVITY
     Route: 048

REACTIONS (4)
  - Asthma [None]
  - Product substitution issue [None]
  - Therapeutic response unexpected with drug substitution [None]
  - Drug ineffective [None]
